FAERS Safety Report 16157330 (Version 1)
Quarter: 2019Q2

REPORT INFORMATION
  Report Type: Spontaneous
  Country: US (occurrence: US)
  Receive Date: 20190228
  Receipt Date: 20190228
  Transmission Date: 20190711
  Serious: Yes (Other)
  Sender: FDA-Public Use
  Company Number: None

PATIENT
  Age: 60 Year
  Sex: Female

DRUGS (2)
  1. LINZESS [Suspect]
     Active Substance: LINACLOTIDE
     Dates: start: 20190220
  2. INGREZZA [Concomitant]
     Active Substance: VALBENAZINE

REACTIONS (1)
  - Syncope [None]

NARRATIVE: CASE EVENT DATE: 20190227
